FAERS Safety Report 24045423 (Version 1)
Quarter: 2024Q3

REPORT INFORMATION
  Report Type: Spontaneous
  Country: US (occurrence: None)
  Receive Date: 20240702
  Receipt Date: 20240702
  Transmission Date: 20241016
  Serious: Yes (unspecified)
  Sender: Public
  Company Number: None

PATIENT
  Sex: Male
  Weight: 103.5 kg

DRUGS (1)
  1. QNASL [Suspect]
     Active Substance: BECLOMETHASONE DIPROPIONATE
     Dosage: 2 SPRAYS , SPARY INTO NOSE TWICE A DAY ?
     Route: 050
     Dates: start: 20240530, end: 20240701

REACTIONS (5)
  - Presyncope [None]
  - Dizziness [None]
  - Asthenia [None]
  - Chest discomfort [None]
  - Throat tightness [None]
